FAERS Safety Report 7491168-1 (Version None)
Quarter: 2011Q2

REPORT INFORMATION
  Report Type: 
  Country: None (occurrence: None)
  Receive Date: 20110518
  Receipt Date: 20110518
  Transmission Date: 20111010
  Serious: No
  Sender: FDA-Public Use
  Company Number: None

PATIENT
  Age: 48 Year
  Sex: Female
  Weight: 53.5244 kg

DRUGS (2)
  1. NITROFURANTOIN [Suspect]
     Indication: URINARY TRACT INFECTION
     Dosage: ONE PRN PO ONE DOSE ONE DOSE
     Route: 048
     Dates: start: 20100507, end: 20110507
  2. NITROFURANTOIN [Suspect]
     Indication: URINARY TRACT INFECTION
     Dosage: ONE PRN PO ONE DOSE ONE DOSE
     Route: 048
     Dates: start: 20110504, end: 20110504

REACTIONS (11)
  - RESPIRATORY RATE INCREASED [None]
  - DYSPNOEA EXERTIONAL [None]
  - CHILLS [None]
  - INFLUENZA LIKE ILLNESS [None]
  - COUGH [None]
  - HEADACHE [None]
  - MYALGIA [None]
  - ARTHRALGIA [None]
  - FATIGUE [None]
  - NON-CARDIAC CHEST PAIN [None]
  - MALAISE [None]
